FAERS Safety Report 9280584 (Version 1)
Quarter: 2013Q2

REPORT INFORMATION
  Report Type: Report from Study
  Country: KR (occurrence: KR)
  Receive Date: 20130509
  Receipt Date: 20130509
  Transmission Date: 20140414
  Serious: Yes (Hospitalization)
  Sender: FDA-Public Use
  Company Number: KR-SANOFI-AVENTIS-2013SA044215

PATIENT
  Age: 78 Year
  Sex: Female
  Weight: 48 kg

DRUGS (16)
  1. RILUZOLE [Suspect]
     Indication: AMYOTROPHIC LATERAL SCLEROSIS
     Route: 048
     Dates: start: 20121027
  2. VITAMIN B COMPLEX [Concomitant]
     Indication: VITAMIN SUPPLEMENTATION
     Route: 048
     Dates: start: 20120925
  3. UBIDECARENONE [Concomitant]
     Indication: UBIQUINONE
     Route: 048
     Dates: start: 20120925
  4. TOCOPHEROL [Concomitant]
     Indication: VITAMIN E
     Route: 048
     Dates: start: 20120925
  5. VITAMIN C [Concomitant]
     Indication: VITAMIN C
     Route: 048
     Dates: start: 20120925
  6. MAGNESIUM [Concomitant]
     Route: 048
     Dates: start: 20121025
  7. ERYTHROPOIETIN [Concomitant]
     Route: 042
     Dates: start: 20121026
  8. MEGESTROL ACETATE [Concomitant]
     Route: 048
     Dates: start: 20121026
  9. SYNTHROID [Concomitant]
     Route: 048
     Dates: start: 2012
  10. CELECOXIB [Concomitant]
     Route: 048
     Dates: start: 20120613, end: 20120813
  11. MECOBALAMIN [Concomitant]
     Indication: VITAMIN SUPPLEMENTATION
     Route: 048
     Dates: start: 20120613, end: 20120813
  12. FOLIC ACID [Concomitant]
     Route: 048
     Dates: start: 20120613, end: 20120813
  13. PYRIDOXINE [Concomitant]
     Indication: VITAMIN SUPPLEMENTATION
     Route: 048
     Dates: start: 20120613, end: 20120813
  14. AMBROXOL [Concomitant]
     Route: 048
     Dates: start: 20120613, end: 20120813
  15. ITOPRIDE [Concomitant]
     Route: 048
     Dates: start: 20120613, end: 20120813
  16. PILOCARPINE HYDROCHLORIDE [Concomitant]
     Route: 048
     Dates: start: 20120613, end: 20120813

REACTIONS (1)
  - Gastrostomy [Recovered/Resolved]
